FAERS Safety Report 9186941 (Version 4)
Quarter: 2016Q1

REPORT INFORMATION
  Report Type: Spontaneous
  Country: US (occurrence: US)
  Receive Date: 20130325
  Receipt Date: 20160121
  Transmission Date: 20160526
  Serious: Yes (Hospitalization, Disabling)
  Sender: FDA-Public Use
  Company Number: US-BAYER-2013-034978

PATIENT
  Age: 25 Year
  Sex: Female
  Weight: 74.83 kg

DRUGS (9)
  1. YAZ [Suspect]
     Active Substance: DROSPIRENONE\ETHINYL ESTRADIOL
     Dosage: UNK
     Dates: start: 201001, end: 20110329
  2. TYLENOL WITH CODEINE [Concomitant]
     Active Substance: ACETAMINOPHEN\CODEINE PHOSPHATE
  3. MEDROL [METHYLPREDNISOLONE] [Concomitant]
  4. LORTAB [Concomitant]
     Active Substance: ACETAMINOPHEN\HYDROCODONE BITARTRATE
  5. MARCAIN PLAIN [Concomitant]
  6. IBUPROFEN. [Concomitant]
     Active Substance: IBUPROFEN
     Dosage: AS NEEDED
  7. CEREBREX [Concomitant]
     Active Substance: CALCIUM GLYCEROPHOSPHATE\CALCIUM PHOSPHATE\GLUTAMIC ACID\VITAMIN B
  8. PREDNISONE. [Concomitant]
     Active Substance: PREDNISONE
  9. CELESTONE [Concomitant]
     Active Substance: BETAMETHASONE

REACTIONS (7)
  - Deep vein thrombosis [Recovered/Resolved]
  - Anxiety [None]
  - Pain [None]
  - Injury [Recovered/Resolved]
  - Pain in extremity [Recovered/Resolved]
  - Anhedonia [None]
  - Peripheral swelling [Recovered/Resolved]

NARRATIVE: CASE EVENT DATE: 201101
